FAERS Safety Report 5569530-3 (Version None)
Quarter: 2007Q4

REPORT INFORMATION
  Report Type: 
  Country: None (occurrence: None)
  Receive Date: 20071220
  Receipt Date: 20071211
  Transmission Date: 20080405
  Serious: Yes (Other)
  Sender: FDA-Public Use
  Company Number: ZA-GILEAD-2007-0014603

PATIENT
  Sex: Female

DRUGS (17)
  1. TRUVADA [Suspect]
     Indication: HIV INFECTION
     Route: 048
     Dates: start: 20070223
  2. TRUVADA [Suspect]
     Route: 048
     Dates: start: 20061130, end: 20070125
  3. TRUVADA [Suspect]
     Dates: start: 20070223
  4. KALETRA [Suspect]
     Indication: HIV INFECTION
     Route: 048
     Dates: start: 20061130
  5. COMBIVIR [Suspect]
     Indication: HIV INFECTION
     Route: 048
     Dates: start: 20070125, end: 20070221
  6. BUSCOPAN [Concomitant]
     Route: 065
     Dates: start: 20070104, end: 20070116
  7. RANITIDINE HCL [Concomitant]
     Route: 065
     Dates: start: 20070104, end: 20070116
  8. FOLIC ACID [Concomitant]
     Dates: start: 20070104, end: 20070130
  9. FERROUS SULFATE TAB [Concomitant]
     Route: 065
     Dates: start: 20070104, end: 20070130
  10. PAINAMOL [Concomitant]
     Route: 065
     Dates: start: 20070104, end: 20070116
  11. CIPROFLOXACIN [Concomitant]
     Route: 065
     Dates: start: 20061228, end: 20070102
  12. CIPROFLOXACIN [Concomitant]
     Dates: start: 20070322, end: 20070327
  13. VITAMIN B [Concomitant]
     Route: 065
     Dates: start: 20061228
  14. ASCORBIC ACID [Concomitant]
     Route: 065
     Dates: start: 20061228
  15. ASCORBIC ACID [Concomitant]
     Route: 065
     Dates: start: 20061001, end: 20061122
  16. FERROUS SUL TAB [Concomitant]
     Route: 065
     Dates: start: 20061001, end: 20061122
  17. VITAMIN CAP [Concomitant]
     Route: 065
     Dates: start: 20061001, end: 20061122

REACTIONS (1)
  - ABORTION SPONTANEOUS [None]
